FAERS Safety Report 16479038 (Version 1)
Quarter: 2019Q2

REPORT INFORMATION
  Report Type: Spontaneous
  Country: DE (occurrence: DE)
  Receive Date: 20190626
  Receipt Date: 20190626
  Transmission Date: 20190711
  Serious: Yes (Other)
  Sender: FDA-Public Use
  Company Number: DE-PFIZER INC-2019264064

PATIENT
  Age: 76 Year
  Sex: Female

DRUGS (1)
  1. ACCUZIDE [Suspect]
     Active Substance: HYDROCHLOROTHIAZIDE\QUINAPRIL HYDROCHLORIDE
     Dosage: 1 DF, 1X/DAY

REACTIONS (3)
  - Choroid neoplasm [Unknown]
  - Eye haemorrhage [Unknown]
  - Rash macular [Unknown]
